FAERS Safety Report 9994580 (Version 1)
Quarter: 2014Q1

REPORT INFORMATION
  Report Type: Report from Study
  Country: US (occurrence: US)
  Receive Date: 20140311
  Receipt Date: 20140311
  Transmission Date: 20141002
  Serious: Yes (Hospitalization)
  Sender: FDA-Public Use
  Company Number: US-ROCHE-1361340

PATIENT
  Age: 32 Year
  Sex: Female

DRUGS (6)
  1. PEGASYS [Suspect]
     Indication: HEPATITIS C
     Dosage: PREFILLED SYRINGE
     Route: 065
     Dates: start: 201308
  2. RIBAVIRIN [Suspect]
     Indication: HEPATITIS C
     Dosage: 2 IN AM, 3 IN PM
     Route: 065
     Dates: start: 201308
  3. RIBAVIRIN [Suspect]
     Dosage: AM
     Route: 065
     Dates: start: 20131211
  4. VICTRELIS [Concomitant]
     Indication: HEPATITIS C
     Dosage: PILLS
     Route: 065
     Dates: start: 201308
  5. CELEXA (UNITED STATES) [Concomitant]
  6. TRADOL [Concomitant]

REACTIONS (3)
  - Syncope [Recovered/Resolved]
  - Anaemia [Recovered/Resolved]
  - Pallor [Recovered/Resolved]
